FAERS Safety Report 22332167 (Version 1)
Quarter: 2023Q2

REPORT INFORMATION
  Report Type: Spontaneous
  Country: US (occurrence: None)
  Receive Date: 20230516
  Receipt Date: 20230516
  Transmission Date: 20230722
  Serious: Yes (Other)
  Sender: FDA-Public Use
  Company Number: None

PATIENT
  Age: 53 Year
  Sex: Female

DRUGS (1)
  1. EMGALITY [Suspect]
     Active Substance: GALCANEZUMAB-GNLM

REACTIONS (5)
  - Arthralgia [None]
  - Depression [None]
  - Anxiety [None]
  - Alopecia [None]
  - Weight increased [None]

NARRATIVE: CASE EVENT DATE: 20230412
